FAERS Safety Report 8874798 (Version 1)
Quarter: 2012Q4

REPORT INFORMATION
  Report Type: 
  Country: JP (occurrence: JP)
  Receive Date: 20121030
  Receipt Date: 20121030
  Transmission Date: 20130627
  Serious: Yes (Life-Threatening)
  Sender: FDA-Public Use
  Company Number: JP-ABBOTT-12P-087-1000676-00

PATIENT
  Age: 62 Year
  Sex: Female
  Weight: 48 kg

DRUGS (9)
  1. SEVOFLURANE [Suspect]
     Indication: ANAESTHESIA
     Dosage: 4 %, 1.5 %
     Route: 055
     Dates: start: 20120410, end: 20120410
  2. NITROUS OXIDE [Suspect]
     Indication: ANAESTHESIA
     Dosage: 4 L/minute
     Route: 055
     Dates: start: 20120410, end: 20120410
  3. CALBLOCK [Suspect]
     Indication: HYPERTENSION
     Route: 048
  4. VALSARTAN [Concomitant]
     Indication: HYPERTENSION
     Route: 048
     Dates: end: 20100409
  5. PRAVASTATIN SODIUM [Concomitant]
     Indication: DYSLIPIDAEMIA
     Route: 048
     Dates: end: 20100409
  6. LORAZEPAM [Concomitant]
     Indication: PANIC DISORDER
     Route: 048
     Dates: end: 20100409
  7. SULPIRIDE [Concomitant]
     Indication: PANIC DISORDER
     Route: 048
     Dates: end: 20100409
  8. MAGNESIUM OXIDE [Concomitant]
     Indication: CONSTIPATION
     Route: 048
     Dates: end: 20100409
  9. CLOPIDOGREL SULFATE [Concomitant]
     Indication: CAROTID ARTERY STENOSIS
     Route: 048
     Dates: end: 20100402

REACTIONS (2)
  - Bundle branch block left [Recovered/Resolved]
  - Blood pressure decreased [Recovered/Resolved]
